FAERS Safety Report 7490745-1 (Version None)
Quarter: 2011Q2

REPORT INFORMATION
  Report Type: 
  Country: None (occurrence: None)
  Receive Date: 20110519
  Receipt Date: 20080121
  Transmission Date: 20111010
  Serious: Yes (Other)
  Sender: FDA-Public Use
  Company Number: US-BAYER-200812247NA

PATIENT
  Age: 55 Year
  Sex: Male
  Weight: 63.492 kg

DRUGS (12)
  1. NORVASC [Concomitant]
  2. VASOTEC [Concomitant]
  3. VASERETIC [Concomitant]
     Dosage: 10/25 MG HALF TABLET DAILY
     Route: 048
  4. TYLENOL EXTRA STRENGTH [Concomitant]
     Dosage: 500 MG EVERY 6 HOURS AS NEEDED
  5. HEPARIN [Concomitant]
     Dosage: UNK
     Dates: start: 20001106, end: 20001106
  6. TRASYLOL [Suspect]
     Indication: CORONARY ARTERY BYPASS
     Dosage: 250 ML (LOADING DOSE)
     Route: 042
     Dates: start: 20061106, end: 20061106
  7. BUMEX [Concomitant]
  8. ACETYLSALICYLIC ACID SRT [Concomitant]
     Dosage: 325 MG, QD
     Route: 048
  9. TRASYLOL [Suspect]
     Indication: CAROTID ENDARTERECTOMY
  10. LAMISIL [Concomitant]
     Dosage: 250 MG, QD
     Route: 048
  11. LASIX [Concomitant]
  12. MANNITOL [Concomitant]
     Indication: CARDIOPULMONARY BYPASS
     Dosage: 25 G, UNK
     Route: 042
     Dates: start: 20001106, end: 20001106

REACTIONS (12)
  - PAIN [None]
  - DEPRESSION [None]
  - EMOTIONAL DISTRESS [None]
  - RENAL INJURY [None]
  - RENAL IMPAIRMENT [None]
  - INJURY [None]
  - ANXIETY [None]
  - UNEVALUABLE EVENT [None]
  - ANHEDONIA [None]
  - STRESS [None]
  - RENAL FAILURE [None]
  - FEAR [None]
